FAERS Safety Report 14200301 (Version 1)
Quarter: 2017Q4

REPORT INFORMATION
  Report Type: Spontaneous
  Country: MX (occurrence: MX)
  Receive Date: 20171117
  Receipt Date: 20171117
  Transmission Date: 20180321
  Serious: Yes (Other)
  Sender: FDA-Public Use
  Company Number: MX-BIOMARINAP-MX-2017-116103

PATIENT
  Age: 8 Year
  Sex: Male
  Weight: 17 kg

DRUGS (1)
  1. ALDURAZYME [Suspect]
     Active Substance: LARONIDASE
     Indication: MUCOPOLYSACCHARIDOSIS I
     Route: 041

REACTIONS (1)
  - Hepatitis [Recovering/Resolving]
